FAERS Safety Report 7117158 (Version 7)
Quarter: 2012Q4

REPORT INFORMATION
  Report Type: Report from Study
  Country: GB (occurrence: US)
  Receive Date: 20090917
  Receipt Date: 20121223
  Transmission Date: 20130627
  Serious: Yes (Hospitalization, Other)
  Sender: FDA-Public Use
  Company Number: US-BRISTOL-MYERS SQUIBB COMPANY-14780480

PATIENT
  Age: 60 Year
  Sex: Male
  Weight: 65.85 kg

DRUGS (20)
  1. IXABEPILONE [Suspect]
     Indication: NON-SMALL CELL LUNG CANCER
     Dosage: over 3 hrs
dose 45mg
     Route: 042
     Dates: start: 20090901, end: 20091013
  2. CARBOPLATIN [Suspect]
     Indication: NON-SMALL CELL LUNG CANCER
     Dosage: 1 df = Auc 5; over 30-60mins; dose 446 mg
     Route: 042
     Dates: start: 20090901, end: 20091013
  3. AVASTIN [Suspect]
     Indication: NON-SMALL CELL LUNG CANCER
     Dosage: over 90mins; dose 1000 mg
     Route: 042
     Dates: start: 20090901, end: 20091013
  4. PROTONIX [Concomitant]
     Dosage: 40mg/d,restrted on 27Aug09
     Route: 048
     Dates: start: 2003
  5. PRAVASTATINE [Concomitant]
     Dosage: started again on 27Aug09
     Dates: start: 2003
  6. ASPIRIN [Concomitant]
     Dosage: restrted on 27Aug09
     Dates: start: 2003
  7. NITRO [Concomitant]
     Indication: CHEST PAIN
     Dates: start: 20090827
  8. METOPROLOL [Concomitant]
     Dosage: 1/2tabs;2003:25mg,bid,27Aug09-11Sep09
     Dates: start: 2003
  9. FLORINEF [Concomitant]
     Dosage: Interrupted on 30Oct09
     Dates: start: 20090908, end: 20091108
  10. ATIVAN [Concomitant]
     Dosage: q6hrs
     Dates: start: 20090901, end: 20091030
  11. LISINOPRIL [Concomitant]
     Dates: start: 2003
  12. HYCODAN [Concomitant]
     Dosage: 4-6hrs
  13. PHENERGAN [Concomitant]
     Dosage: 6-8hrs
     Dates: start: 20090901
  14. ZOFRAN [Concomitant]
     Dosage: q8 hours
     Dates: start: 20090901
  15. POTASSIUM CHLORIDE [Concomitant]
     Dates: start: 20091105
  16. VITAMIN B12 [Concomitant]
     Dates: start: 20091105
  17. MIDODRINE HCL [Concomitant]
     Dosage: 1Dosageform=5mg-2tabs
     Dates: start: 20091106
  18. ZYRTEC [Concomitant]
     Dates: start: 20091105
  19. ONDANSETRON [Concomitant]
     Dosage: 1dosageform=4mg-2tabs,8hrs
     Dates: start: 20091105
  20. PANTOPRAZOLE [Concomitant]
     Route: 048

REACTIONS (12)
  - Dehydration [Recovered/Resolved]
  - Hypotension [Recovered/Resolved]
  - Hypovolaemia [Unknown]
  - Hypokalaemia [Recovered/Resolved]
  - Fatigue [Recovered/Resolved]
  - Vomiting [Unknown]
  - Nausea [Unknown]
  - Asthenia [Unknown]
  - Haemoglobin decreased [Unknown]
  - Platelet count decreased [Unknown]
  - Neutrophil count decreased [Unknown]
  - White blood cell count decreased [Unknown]
